FAERS Safety Report 7234203-8 (Version None)
Quarter: 2011Q1

REPORT INFORMATION
  Report Type: 
  Country: None (occurrence: None)
  Receive Date: 20110119
  Receipt Date: 20110113
  Transmission Date: 20110831
  Serious: Yes (Death, Other)
  Sender: FDA-Public Use
  Company Number: US-GENZYME-RENA-1001047

PATIENT

DRUGS (1)
  1. RENVELA [Suspect]
     Indication: HYPERPHOSPHATAEMIA
     Dosage: 7.2 G, QD
     Route: 048

REACTIONS (5)
  - HAEMODYNAMIC INSTABILITY [None]
  - MELAENA [None]
  - GASTRITIS [None]
  - CARDIO-RESPIRATORY ARREST [None]
  - ABDOMINAL DISCOMFORT [None]
